FAERS Safety Report 19408112 (Version 2)
Quarter: 2021Q3

REPORT INFORMATION
  Report Type: Spontaneous
  Country: DE (occurrence: DE)
  Receive Date: 20210611
  Receipt Date: 20210820
  Transmission Date: 20211014
  Serious: Yes (Hospitalization)
  Sender: FDA-Public Use
  Company Number: DE-TEVA-2021-DE-1920590

PATIENT
  Age: 90 Year
  Sex: Male
  Weight: 90 kg

DRUGS (13)
  1. ASS 100 [Suspect]
     Active Substance: ASPIRIN
     Dosage: 100 MILLIGRAM DAILY;  0?0?1?0
  2. MOVICOL [Concomitant]
     Active Substance: POLYETHYLENE GLYCOL 3350\POTASSIUM CHLORIDE\SODIUM BICARBONATE\SODIUM CHLORIDE
     Dosage: 1 DOSAGE FORMS DAILY; 1?0?0?0
  3. OMEPRAZOL [Concomitant]
     Active Substance: OMEPRAZOLE
     Dosage: 20 MILLIGRAM DAILY; 0?0?1?0
  4. ABSTRAL [Concomitant]
     Active Substance: FENTANYL CITRATE
     Dosage: 100 MCG, IF NECESSARY, TABLETS
     Route: 060
  5. TORASEMID [Concomitant]
     Active Substance: TORSEMIDE
     Dosage: 50 MILLIGRAM DAILY; 1?0?0?0
  6. METAMIZOL [Concomitant]
     Active Substance: METAMIZOLE SODIUM
     Dosage: 40?40?40?40, DROPS
  7. HALDOL [Concomitant]
     Active Substance: HALOPERIDOL
     Dosage: 9 GTT DAILY; 3?3?3?0, DROPS
  8. METOPROLOL. [Concomitant]
     Active Substance: METOPROLOL
     Dosage: 47.5 MILLIGRAM DAILY; 1?0?0?0, SUSTAINED?RELEASE TABLETS
  9. MIRTAZAPIN [Suspect]
     Active Substance: MIRTAZAPINE
     Dosage: .5 MILLIGRAM DAILY; 15 MG, 0?0?0?0.5
  10. FOLSAURE [Concomitant]
     Active Substance: FOLIC ACID
     Dosage: 10 MILLIGRAM DAILY; 1?0?1?0
  11. FENTANYL. [Concomitant]
     Active Substance: FENTANYL
     Dosage: 12 U / H, CHANGE EVERY 3 DAYS, TRANSDERMAL PATCH
     Route: 062
  12. ESOMEPRAZOL ABZ 20MG [Concomitant]
     Dosage: 20 MILLIGRAM DAILY; 0?0?1?0
  13. COLECALCIFEROL (VITAMIN D) [Concomitant]
     Active Substance: CHOLECALCIFEROL
     Dosage: 2 DOSAGE FORMS DAILY; 1000 IU, 0?2?0?0

REACTIONS (3)
  - Flank pain [Not Recovered/Not Resolved]
  - Anaemia [Not Recovered/Not Resolved]
  - Abdominal pain [Not Recovered/Not Resolved]
